FAERS Safety Report 5679424-0 (Version None)
Quarter: 2008Q1

REPORT INFORMATION
  Report Type: 
  Country: None (occurrence: None)
  Receive Date: 20080325
  Receipt Date: 20080313
  Transmission Date: 20080703
  Serious: Yes (Hospitalization)
  Sender: FDA-Public Use
  Company Number: JP-PFIZER INC-2008024433

PATIENT
  Age: 65 Year
  Sex: Female

DRUGS (6)
  1. AZULFIDINE EN-TABS [Suspect]
     Indication: RHEUMATOID ARTHRITIS
     Route: 048
     Dates: start: 20070101, end: 20080304
  2. RIMATIL [Suspect]
     Route: 048
     Dates: start: 20070101, end: 20080304
  3. SEIHAITOU [Suspect]
     Route: 048
  4. PREDONINE [Suspect]
  5. LOSARTAN POTASSIUM AND HYDROCHLOROTHIAZIDE [Suspect]
     Route: 048
  6. MINOMYCIN [Suspect]
     Dates: start: 20070101, end: 20080304

REACTIONS (3)
  - PNEUMOCOCCAL INFECTION [None]
  - PNEUMONIA [None]
  - URINARY TRACT INFECTION [None]
